FAERS Safety Report 13402172 (Version 1)
Quarter: 2017Q2

REPORT INFORMATION
  Report Type: Spontaneous
  Country: US (occurrence: US)
  Receive Date: 20170404
  Receipt Date: 20170404
  Transmission Date: 20170830
  Serious: Yes (Other)
  Sender: FDA-Public Use
  Company Number: US-INDIVIOR LIMITED-INDV-100145-2017

PATIENT
  Age: 21 Year
  Sex: Female

DRUGS (1)
  1. SUBOXONE [Suspect]
     Active Substance: BUPRENORPHINE HYDROCHLORIDE\NALOXONE HYDROCHLORIDE
     Indication: PRODUCT USED FOR UNKNOWN INDICATION
     Dosage: UNK
     Route: 065

REACTIONS (7)
  - Ocular hyperaemia [Unknown]
  - Toxicity to various agents [Unknown]
  - Child neglect [Unknown]
  - Mental impairment [Unknown]
  - Impaired driving ability [Unknown]
  - Loss of consciousness [Unknown]
  - Dysarthria [Unknown]

NARRATIVE: CASE EVENT DATE: 20170323
